FAERS Safety Report 14409498 (Version 1)
Quarter: 2018Q1

REPORT INFORMATION
  Report Type: Report from Study
  Country: US (occurrence: US)
  Receive Date: 20180119
  Receipt Date: 20180119
  Transmission Date: 20180509
  Serious: Yes (Death, Other)
  Sender: FDA-Public Use
  Company Number: US-ADIENNEP-2018AD000018

PATIENT
  Age: 15 Year
  Sex: Female

DRUGS (4)
  1. MELPHALAN. [Suspect]
     Active Substance: MELPHALAN
     Indication: BONE MARROW CONDITIONING REGIMEN
     Dosage: 140 MG/M2
  2. ANTITHYMOCYTE IMMUNOGLOBULIN (RABBIT) [Suspect]
     Active Substance: LAPINE T-LYMPHOCYTE IMMUNE GLOBULIN
     Indication: BONE MARROW CONDITIONING REGIMEN
     Dosage: 2.5 MG/KG DAILY
  3. THIOTEPA. [Suspect]
     Active Substance: THIOTEPA
     Indication: BONE MARROW CONDITIONING REGIMEN
     Dosage: 2 DOSAGES 5 MG/KG DAILY
  4. FLUDARABINE [Suspect]
     Active Substance: FLUDARABINE PHOSPHATE
     Indication: BONE MARROW CONDITIONING REGIMEN
     Dosage: 40 MG/M2 DAILY

REACTIONS (10)
  - Post transplant lymphoproliferative disorder [Recovered/Resolved]
  - Graft versus host disease [Unknown]
  - Renal failure [Fatal]
  - Cytomegalovirus enteritis [Unknown]
  - Posterior reversible encephalopathy syndrome [Unknown]
  - Thrombotic microangiopathy [Fatal]
  - Cytomegalovirus infection [Unknown]
  - Aspergillus infection [Fatal]
  - Human herpesvirus 6 infection [Unknown]
  - Epstein-Barr virus infection [Unknown]
